FAERS Safety Report 16667348 (Version 1)
Quarter: 2019Q3

REPORT INFORMATION
  Report Type: Spontaneous
  Country: US (occurrence: US)
  Receive Date: 20190805
  Receipt Date: 20190805
  Transmission Date: 20191004
  Serious: Yes (Death, Hospitalization, Other)
  Sender: FDA-Public Use
  Company Number: US-LUNDBECK-DKLU3001928

PATIENT
  Age: 7 Month
  Sex: Male

DRUGS (3)
  1. SABRIL [Suspect]
     Active Substance: VIGABATRIN
     Indication: INFANTILE SPASMS
     Route: 065
  2. ACTH [Suspect]
     Active Substance: CORTICOTROPIN
     Indication: INFANTILE SPASMS
     Route: 065
  3. ACTH [Suspect]
     Active Substance: CORTICOTROPIN
     Route: 065

REACTIONS (6)
  - Autonomic nervous system imbalance [Unknown]
  - Toxicity to various agents [Unknown]
  - Nuclear magnetic resonance imaging abnormal [Unknown]
  - Death [Fatal]
  - Brain oedema [Unknown]
  - Chorea [Unknown]
